FAERS Safety Report 16242500 (Version 2)
Quarter: 2019Q2

REPORT INFORMATION
  Report Type: Report from Study
  Country: KR (occurrence: KR)
  Receive Date: 20190426
  Receipt Date: 20190514
  Transmission Date: 20190711
  Serious: Yes (Hospitalization)
  Sender: FDA-Public Use
  Company Number: KR-CELLTRION INC.-2019KR020656

PATIENT

DRUGS (6)
  1. CLINIMIX N9G15E [Concomitant]
     Indication: SUPPORTIVE CARE
     Dosage: 1.5 LITER, EOD
     Route: 042
     Dates: start: 20190410, end: 20190427
  2. CISPLATIN. [Suspect]
     Active Substance: CISPLATIN
     Indication: CHEMOTHERAPY
     Dosage: 136.8 MG (80MG/M2  EVERY 3 WEEKS)
     Route: 042
     Dates: start: 20190327
  3. NORMAL SALINE [Concomitant]
     Active Substance: SODIUM CHLORIDE
     Indication: ACUTE KIDNEY INJURY
     Dosage: 1000 ML, QD
     Route: 042
     Dates: start: 20190410, end: 20190422
  4. PEMBROLIZUMAB. [Suspect]
     Active Substance: PEMBROLIZUMAB
     Indication: CHEMOTHERAPY
     Dosage: 200 MG (200 MG, EVERY 3 WEEKS)
     Route: 042
     Dates: start: 20190327
  5. HERZUMA [Suspect]
     Active Substance: TRASTUZUMAB-PKRB
     Indication: CHEMOTHERAPY
     Dosage: 507.2 MG (8 MG/KG EVERY 3 WEEKS)
     Route: 042
     Dates: start: 20190327
  6. XELODA [Suspect]
     Active Substance: CAPECITABINE
     Indication: CHEMOTHERAPY
     Dosage: 1750 MG (1000MG/M2 EVERY 3 WEEKS)
     Route: 048
     Dates: start: 20190327, end: 20190409

REACTIONS (1)
  - Acute kidney injury [Recovered/Resolved]

NARRATIVE: CASE EVENT DATE: 20190410
